FAERS Safety Report 14188428 (Version 2)
Quarter: 2017Q4

REPORT INFORMATION
  Report Type: Report from Study
  Country: US (occurrence: US)
  Receive Date: 20171114
  Receipt Date: 20171207
  Transmission Date: 20180321
  Serious: Yes (Death, Hospitalization, Other)
  Sender: FDA-Public Use
  Company Number: US-JAZZ-2017-US-014920

PATIENT
  Age: 70 Year
  Sex: Female

DRUGS (5)
  1. XYREM [Suspect]
     Active Substance: SODIUM OXYBATE
     Dosage: 2.25 G, QD (SECOND DOSE)
     Route: 048
     Dates: start: 201109
  2. XYREM [Suspect]
     Active Substance: SODIUM OXYBATE
     Indication: NARCOLEPSY
     Dosage: 2.25 G, BID
     Route: 048
     Dates: start: 200309, end: 200310
  3. XYREM [Suspect]
     Active Substance: SODIUM OXYBATE
     Dosage: 4.25 G, QD (FIRST DOSE)
     Route: 048
     Dates: start: 201109
  4. XYREM [Suspect]
     Active Substance: SODIUM OXYBATE
     Dosage: 4.5 G, BID
     Route: 048
     Dates: start: 200708, end: 2010
  5. XYREM [Suspect]
     Active Substance: SODIUM OXYBATE
     Indication: CATAPLEXY
     Dosage: DOSE ADJUSTMENTS
     Route: 048
     Dates: start: 200310, end: 200708

REACTIONS (6)
  - Lung neoplasm malignant [Unknown]
  - Hepatic cancer [Unknown]
  - Atrial fibrillation [Unknown]
  - Abnormal behaviour [Not Recovered/Not Resolved]
  - Death [Fatal]
  - Ovarian cancer [Unknown]

NARRATIVE: CASE EVENT DATE: 20171026
